FAERS Safety Report 5027844-X (Version None)
Quarter: 2006Q2

REPORT INFORMATION
  Report Type: 
  Country: None (occurrence: None)
  Receive Date: 20060616
  Receipt Date: 20050922
  Transmission Date: 20061013
  Serious: Yes (Death)
  Sender: FDA-Public Use
  Company Number: 2005AC01494

PATIENT
  Age: 56 Year
  Sex: Female

DRUGS (5)
  1. SEROQUEL [Suspect]
     Route: 048
  2. DIPHENHYDRAMINE HCL [Suspect]
  3. PHENYTOIN [Suspect]
  4. DIAZEPAM [Suspect]
  5. NORDIAZEPAM [Suspect]

REACTIONS (2)
  - DRUG TOXICITY [None]
  - PULMONARY OEDEMA [None]
